FAERS Safety Report 14265793 (Version 1)
Quarter: 2017Q4

REPORT INFORMATION
  Report Type: Spontaneous
  Country: DE (occurrence: DE)
  Receive Date: 20171209
  Receipt Date: 20171209
  Transmission Date: 20180321
  Serious: Yes (Death, Hospitalization, Other)
  Sender: FDA-Public Use
  Company Number: DE-CIPLA LTD.-2017DE22652

PATIENT

DRUGS (11)
  1. ROPINIROLE. [Concomitant]
     Active Substance: ROPINIROLE
     Indication: PARKINSON^S DISEASE
     Dosage: 4 MG, PER DAY
     Route: 065
  2. TOPIRAMATE. [Suspect]
     Active Substance: TOPIRAMATE
     Indication: STATUS EPILEPTICUS
     Dosage: 100 MG/DAY PER GAVAGE
     Route: 065
  3. LACOSAMIDE. [Suspect]
     Active Substance: LACOSAMIDE
     Indication: STATUS EPILEPTICUS
     Dosage: 200 MG/DAY
     Route: 065
  4. VALPROIC ACID. [Suspect]
     Active Substance: VALPROIC ACID
     Indication: STATUS EPILEPTICUS
     Dosage: UNK, (75-110 MG/HOUR)
     Route: 065
  5. LEVODOPA [Concomitant]
     Active Substance: LEVODOPA
     Indication: PARKINSON^S DISEASE
     Dosage: UNK
     Route: 065
  6. LEVODOPA [Concomitant]
     Active Substance: LEVODOPA
     Dosage: 700 MG, PER DAY
     Route: 065
  7. ACETYLSALICYLIC ACID [Concomitant]
     Active Substance: ASPIRIN
     Dosage: UNK
     Route: 065
  8. LEVETIRACETAM. [Suspect]
     Active Substance: LEVETIRACETAM
     Indication: STATUS EPILEPTICUS
     Dosage: 3 G/DAY
     Route: 065
  9. PHENYTOIN. [Suspect]
     Active Substance: PHENYTOIN
     Indication: STATUS EPILEPTICUS
     Dosage: UNK, 12-15 MG/HOUR
     Route: 042
  10. PHENYTOIN. [Suspect]
     Active Substance: PHENYTOIN
     Dosage: 450 MG/DAY PER GAVAGE
     Route: 065
  11. TOLCAPONE. [Concomitant]
     Active Substance: TOLCAPONE
     Indication: PARKINSON^S DISEASE
     Dosage: 300 MG, PER DAY
     Route: 065

REACTIONS (6)
  - Death [Fatal]
  - Coma [Recovered/Resolved]
  - Fall [Unknown]
  - Ammonia increased [Unknown]
  - Pelvic fracture [Unknown]
  - Drug ineffective [Unknown]
